FAERS Safety Report 16032585 (Version 4)
Quarter: 2019Q2

REPORT INFORMATION
  Report Type: Spontaneous
  Country: DE (occurrence: DE)
  Receive Date: 20190304
  Receipt Date: 20190521
  Transmission Date: 20190711
  Serious: Yes (Other)
  Sender: FDA-Public Use
  Company Number: DE-AUROBINDO-AUR-APL-2019-010923

PATIENT

DRUGS (3)
  1. BISOPROLOL DEXCEL [Concomitant]
     Active Substance: BISOPROLOL FUMARATE
     Indication: HYPERTENSION
     Dosage: 2.5 MILLIGRAM
     Route: 048
  2. RAMIPRIL PUREN 2.5 MG TABLET [Suspect]
     Active Substance: RAMIPRIL
     Indication: HYPERTENSION
     Dosage: 2.5 MILLIGRAM, 3 TIMES A DAY
     Route: 048
     Dates: start: 20190212
  3. ASPIRIN PROTECT [Concomitant]
     Active Substance: ASPIRIN
     Indication: ANTICOAGULANT THERAPY
     Dosage: 100 MILLIGRAM
     Route: 048

REACTIONS (4)
  - Breast pain [Recovered/Resolved]
  - Asthenia [Recovered/Resolved]
  - Drug ineffective [Unknown]
  - Anxiety [Recovered/Resolved]

NARRATIVE: CASE EVENT DATE: 20190213
